FAERS Safety Report 7002347-1 (Version None)
Quarter: 2010Q3

REPORT INFORMATION
  Report Type: 
  Country: None (occurrence: None)
  Receive Date: 20100920
  Receipt Date: 20070802
  Transmission Date: 20110219
  Serious: No
  Sender: FDA-Public Use
  Company Number: US-ASTRAZENECA-2006UW26515

PATIENT
  Age: 18259 Day
  Sex: Male
  Weight: 136.1 kg

DRUGS (15)
  1. SEROQUEL [Suspect]
     Indication: PSYCHOTIC DISORDER
     Dosage: 100 MG 6 TIMES DAILY
     Route: 048
     Dates: start: 20010101
  2. SEROQUEL [Suspect]
     Dosage: 150MG-1825MG IN A FLUCTUATING DOSE
     Route: 048
     Dates: start: 20030401
  3. CLOZARIL [Concomitant]
  4. GEODON [Concomitant]
     Dosage: 120 MG-160 MG
     Route: 048
     Dates: start: 20030306
  5. HALDOL [Concomitant]
  6. RISPERDAL [Concomitant]
     Route: 048
     Dates: start: 20030306
  7. THORAZINE [Concomitant]
  8. LITHIUM [Concomitant]
  9. NAVANE [Concomitant]
  10. COGENTIN [Concomitant]
  11. TEGRETOL [Concomitant]
     Dosage: 200MG-1600MG
     Dates: start: 20030206
  12. ATIVAN [Concomitant]
     Dosage: 2 MG-8 MG
     Route: 048
     Dates: start: 20030306
  13. LEXAPRO [Concomitant]
     Dosage: 10 MG-30 MG
     Dates: start: 20040901
  14. LAMICTAL [Concomitant]
  15. TRAZODONE HCL [Concomitant]
     Route: 048
     Dates: start: 20070101

REACTIONS (3)
  - DIABETES MELLITUS [None]
  - TYPE 1 DIABETES MELLITUS [None]
  - TYPE 2 DIABETES MELLITUS [None]
